FAERS Safety Report 13515099 (Version 1)
Quarter: 2017Q2

REPORT INFORMATION
  Report Type: Spontaneous
  Country: FR (occurrence: FR)
  Receive Date: 20170504
  Receipt Date: 20170504
  Transmission Date: 20170830
  Serious: Yes (Disabling)
  Sender: FDA-Public Use
  Company Number: FR-009507513-1704FRA015265

PATIENT
  Age: 69 Year
  Sex: Female

DRUGS (1)
  1. FOSAVANCE [Suspect]
     Active Substance: ALENDRONATE SODIUM\CHOLECALCIFEROL
     Indication: OSTEOPOROSIS
     Dosage: UNK
     Route: 048
     Dates: start: 2005, end: 2015

REACTIONS (2)
  - Femur fracture [Recovered/Resolved with Sequelae]
  - Fracture delayed union [Recovered/Resolved with Sequelae]

NARRATIVE: CASE EVENT DATE: 201502
